FAERS Safety Report 5161284-8 (Version None)
Quarter: 2006Q4

REPORT INFORMATION
  Report Type: 
  Country: None (occurrence: None)
  Receive Date: 20061130
  Receipt Date: 20061004
  Transmission Date: 20070319
  Serious: No
  Sender: FDA-Public Use
  Company Number: US-BRISTOL-MYERS SQUIBB COMPANY-13536768

PATIENT

DRUGS (2)
  1. ERBITUX [Suspect]
  2. DEXTROSE 5% [Suspect]

REACTIONS (1)
  - DRUG ADMINISTRATION ERROR [None]
